FAERS Safety Report 10362634 (Version 1)
Quarter: 2014Q3

REPORT INFORMATION
  Report Type: Spontaneous
  Country: US (occurrence: US)
  Receive Date: 20140805
  Receipt Date: 20140805
  Transmission Date: 20150326
  Serious: Yes (Other)
  Sender: FDA-Public Use
  Company Number: US-PFIZER INC-2014214984

PATIENT
  Sex: Male

DRUGS (1)
  1. NEURONTIN [Suspect]
     Active Substance: GABAPENTIN
     Dosage: 1200 MG (BY TAKING THREE 400MG), 3X/DAY

REACTIONS (9)
  - Back disorder [Unknown]
  - Bladder disorder [Unknown]
  - Neuropathy peripheral [Unknown]
  - Anxiety [Unknown]
  - Spinal disorder [Unknown]
  - Bowel movement irregularity [Unknown]
  - Pain [Unknown]
  - Agitation [Unknown]
  - Gastrointestinal hypermotility [Unknown]
